FAERS Safety Report 10258133 (Version 1)
Quarter: 2014Q2

REPORT INFORMATION
  Report Type: Spontaneous
  Country: CH (occurrence: CH)
  Receive Date: 20140625
  Receipt Date: 20140625
  Transmission Date: 20141212
  Serious: Yes (Life-Threatening, Hospitalization)
  Sender: FDA-Public Use
  Company Number: CH-TEVA-490555ISR

PATIENT
  Age: 27 Year
  Sex: Female

DRUGS (3)
  1. INFLAMAC [Suspect]
     Indication: MUSCULOSKELETAL PAIN
     Dosage: END DATE ABOUT 13-APR-2014
     Route: 048
     Dates: start: 20140407, end: 201404
  2. LYRICA [Suspect]
     Indication: MUSCULOSKELETAL PAIN
     Dosage: 75 MILLIGRAM DAILY; END DATE ABOUT 08-APR-2014
     Route: 048
     Dates: start: 20140407, end: 201404
  3. SPIRICORT 50 [Suspect]
     Indication: MUSCULOSKELETAL PAIN
     Dosage: 50 MILLIGRAM DAILY;
     Route: 048
     Dates: start: 20140407

REACTIONS (13)
  - Acute generalised exanthematous pustulosis [Unknown]
  - Neutrophilia [Unknown]
  - Leukocytosis [Unknown]
  - Pyrexia [Unknown]
  - Pruritus [Unknown]
  - Dermatitis exfoliative [Unknown]
  - Tachycardia [Unknown]
  - Blood pressure decreased [Unknown]
  - C-reactive protein increased [Unknown]
  - Transaminases increased [Unknown]
  - Feeling hot [Unknown]
  - Condition aggravated [Unknown]
  - Rash pustular [Unknown]
